FAERS Safety Report 25338122 (Version 2)
Quarter: 2025Q2

REPORT INFORMATION
  Report Type: Spontaneous
  Country: GB (occurrence: GB)
  Receive Date: 20250520
  Receipt Date: 20250602
  Transmission Date: 20250716
  Serious: Yes (Hospitalization, Disabling, Other)
  Sender: SANDOZ
  Company Number: None

PATIENT

DRUGS (3)
  1. CLOBETASOL [Suspect]
     Active Substance: CLOBETASOL
     Indication: Product used for unknown indication
     Route: 065
  2. MOMETASONE [Suspect]
     Active Substance: MOMETASONE
     Indication: Product used for unknown indication
     Route: 065
  3. MOMETASONE [Suspect]
     Active Substance: MOMETASONE
     Indication: Product used for unknown indication
     Route: 065

REACTIONS (4)
  - Topical steroid withdrawal reaction [Recovered/Resolved]
  - Skin burning sensation [Recovering/Resolving]
  - Skin burning sensation [Recovering/Resolving]
  - Medication error [Unknown]

NARRATIVE: CASE EVENT DATE: 20220110
